FAERS Safety Report 7292354-6 (Version None)
Quarter: 2011Q1

REPORT INFORMATION
  Report Type: 
  Country: None (occurrence: None)
  Receive Date: 20110202
  Receipt Date: 20110125
  Transmission Date: 20110831
  Serious: Yes (Congenital Anomaly, Other)
  Sender: FDA-Public Use
  Company Number: 2011SP004168

PATIENT

DRUGS (1)
  1. IMPLANON [Suspect]
     Indication: DRUG EXPOSURE DURING PREGNANCY
     Dosage: ; TRPL
     Route: 064

REACTIONS (2)
  - DRUG EXPOSURE DURING PREGNANCY [None]
  - NEURAL TUBE DEFECT [None]
